FAERS Safety Report 6533012-2 (Version None)
Quarter: 2010Q1

REPORT INFORMATION
  Report Type: 
  Country: None (occurrence: None)
  Receive Date: 20100111
  Receipt Date: 20100107
  Transmission Date: 20100710
  Serious: Yes (Hospitalization)
  Sender: FDA-Public Use
  Company Number: DE-BRISTOL-MYERS SQUIBB COMPANY-14628671

PATIENT
  Age: 59 Year
  Sex: Male
  Weight: 102 kg

DRUGS (2)
  1. CISPLATIN [Suspect]
     Indication: GASTROOESOPHAGEAL CANCER
     Dosage: DAY 1 OF CYCLE. RECENT INFUSION: 16APR09 TEMPORARILY DISCONTINUED ON 06MAY2009
     Route: 042
     Dates: start: 20090326
  2. XELODA [Suspect]
     Indication: GASTROOESOPHAGEAL CANCER
     Dosage: FORM=TAB,ON DAY 1-15;RECENT DOSE-30APR09,1ST INTAKE(CURRENT CYC):16APR09,TEMP DISCONT-06MAY2009
     Route: 048
     Dates: start: 20090326

REACTIONS (2)
  - DEEP VEIN THROMBOSIS [None]
  - PULMONARY EMBOLISM [None]
